FAERS Safety Report 6040048-7 (Version None)
Quarter: 2009Q1

REPORT INFORMATION
  Report Type: 
  Country: None (occurrence: None)
  Receive Date: 20090116
  Receipt Date: 20071127
  Transmission Date: 20090719
  Serious: No
  Sender: FDA-Public Use
  Company Number: US-BRISTOL-MYERS SQUIBB COMPANY-13995923

PATIENT
  Age: 50 Year
  Sex: Female

DRUGS (4)
  1. ABILIFY [Suspect]
     Route: 048
  2. EFFEXOR [Concomitant]
  3. AMBIEN CR [Concomitant]
  4. KLONOPIN [Concomitant]

REACTIONS (1)
  - RESTLESSNESS [None]
